FAERS Safety Report 7511342-5 (Version None)
Quarter: 2011Q2

REPORT INFORMATION
  Report Type: 
  Country: None (occurrence: None)
  Receive Date: 20110531
  Receipt Date: 20110421
  Transmission Date: 20111010
  Serious: Yes (Other)
  Sender: FDA-Public Use
  Company Number: US-BAYER-200942660NA

PATIENT
  Age: 37 Year
  Sex: Female
  Weight: 88 kg

DRUGS (19)
  1. YASMIN [Suspect]
     Indication: ENDOMETRIOSIS
     Dosage: UNK
     Route: 048
     Dates: start: 20060717, end: 20080501
  2. YASMIN [Suspect]
     Indication: PELVIC PAIN
  3. YAZ [Suspect]
     Indication: GENITAL HAEMORRHAGE
  4. HYDROCODONE BITARTRATE AND ACETAMINOPHEN [Concomitant]
  5. YAZ [Suspect]
     Indication: PELVIC PAIN
  6. LEVOXYL [Concomitant]
     Dates: start: 20020101
  7. MULTI-VITAMIN [Concomitant]
  8. ZYMAR [Concomitant]
  9. AMBIEN CR [Concomitant]
  10. NEXIUM [Concomitant]
  11. YASMIN [Suspect]
     Indication: GENITAL HAEMORRHAGE
  12. FLAX SEED OIL [Concomitant]
  13. FISH OIL [Concomitant]
  14. YAZ [Suspect]
     Indication: ENDOMETRIOSIS
     Route: 048
     Dates: start: 20080801
  15. DROSPIRENONE AND ETHINYL ESTRADIOL [Suspect]
     Indication: PELVIC PAIN
  16. DROSPIRENONE AND ETHINYL ESTRADIOL [Suspect]
     Indication: GENITAL HAEMORRHAGE
  17. CELEBREX [Concomitant]
     Dosage: 200 MG, QD
     Dates: end: 20071217
  18. DROSPIRENONE AND ETHINYL ESTRADIOL [Suspect]
     Indication: ENDOMETRIOSIS
     Route: 048
     Dates: start: 20080801, end: 20090801
  19. CYTOMEL [Concomitant]
     Dates: start: 20050101

REACTIONS (10)
  - CHOLECYSTITIS CHRONIC [None]
  - ABDOMINAL PAIN UPPER [None]
  - ABDOMINAL TENDERNESS [None]
  - NAUSEA [None]
  - CHILLS [None]
  - CHEST PAIN [None]
  - ABDOMINAL DISCOMFORT [None]
  - GALLBLADDER DISORDER [None]
  - CHOLELITHIASIS [None]
  - GASTROOESOPHAGEAL REFLUX DISEASE [None]
